FAERS Safety Report 18034762 (Version 2)
Quarter: 2020Q3

REPORT INFORMATION
  Report Type: Spontaneous
  Country: US (occurrence: US)
  Receive Date: 20200716
  Receipt Date: 20200914
  Transmission Date: 20201103
  Serious: Yes (Hospitalization, Other)
  Sender: FDA-Public Use
  Company Number: US-AUROBINDO-AUR-APL-2020-035428

PATIENT
  Age: 25 Year
  Sex: Female

DRUGS (2)
  1. METHYLPREDNISOLONE. [Suspect]
     Active Substance: METHYLPREDNISOLONE
     Indication: PRODUCT USED FOR UNKNOWN INDICATION
     Dosage: UNK
     Route: 065
  2. FUROSEMIDE. [Suspect]
     Active Substance: FUROSEMIDE
     Indication: PRODUCT USED FOR UNKNOWN INDICATION
     Dosage: UNK
     Route: 065

REACTIONS (15)
  - Thrombocytopenia [Recovering/Resolving]
  - Brain oedema [Recovered/Resolved]
  - Hypoxia [Recovering/Resolving]
  - Somnolence [Recovering/Resolving]
  - Nystagmus [Unknown]
  - Hyponatraemia [Recovering/Resolving]
  - Posterior reversible encephalopathy syndrome [Recovering/Resolving]
  - Generalised tonic-clonic seizure [Recovering/Resolving]
  - Asthenia [Recovering/Resolving]
  - Renal failure [Recovering/Resolving]
  - Pneumonia [Recovering/Resolving]
  - Gaze palsy [Recovering/Resolving]
  - Ophthalmoplegia [Recovering/Resolving]
  - Hypertension [Recovering/Resolving]
  - Anaemia [Unknown]
